FAERS Safety Report 18123642 (Version 1)
Quarter: 2020Q3

REPORT INFORMATION
  Report Type: Spontaneous
  Country: US (occurrence: US)
  Receive Date: 20200807
  Receipt Date: 20200807
  Transmission Date: 20201103
  Serious: No
  Sender: FDA-Public Use
  Company Number: None

PATIENT
  Age: 63 Year
  Sex: Female
  Weight: 85.05 kg

DRUGS (9)
  1. VITAMIN C [Concomitant]
     Active Substance: ASCORBIC ACID
  2. LISINOPRIL. [Concomitant]
     Active Substance: LISINOPRIL
  3. MORPHINE [Concomitant]
     Active Substance: MORPHINE
  4. NEURONTIN [Concomitant]
     Active Substance: GABAPENTIN
  5. CLONIDINE. [Concomitant]
     Active Substance: CLONIDINE
  6. LEVOFLOXACIN. [Suspect]
     Active Substance: LEVOFLOXACIN
     Indication: BREAST ABSCESS
     Dosage: ?          QUANTITY:1 TABLET(S);?
     Route: 048
     Dates: start: 20200707, end: 20200710
  7. HCTZ [Concomitant]
     Active Substance: HYDROCHLOROTHIAZIDE
  8. OXYCODONE [Concomitant]
     Active Substance: OXYCODONE
  9. ATENOLOL. [Concomitant]
     Active Substance: ATENOLOL

REACTIONS (3)
  - Arthralgia [None]
  - Pain in extremity [None]
  - Neuropathy peripheral [None]

NARRATIVE: CASE EVENT DATE: 20200708
